FAERS Safety Report 8535526-2 (Version None)
Quarter: 2012Q3

REPORT INFORMATION
  Report Type: 
  Country: None (occurrence: None)
  Receive Date: 20120718
  Receipt Date: 20120718
  Transmission Date: 20120928
  Serious: No
  Sender: FDA-Public Use
  Company Number: None

PATIENT
  Age: 62 Year
  Sex: Female
  Weight: 53.0709 kg

DRUGS (1)
  1. ZOMETA [Suspect]
     Indication: BONE DENSITY DECREASED
     Dosage: 4MG Q 42 DAYS IV DRIP
     Route: 041
     Dates: start: 20120222, end: 20120717

REACTIONS (1)
  - OSTEONECROSIS OF JAW [None]
